FAERS Safety Report 5807817-7 (Version None)
Quarter: 2008Q3

REPORT INFORMATION
  Report Type: 
  Country: None (occurrence: None)
  Receive Date: 20080711
  Receipt Date: 20080630
  Transmission Date: 20090109
  Serious: Yes (Hospitalization, Other)
  Sender: FDA-Public Use
  Company Number: US-PFIZER INC-2006155449

PATIENT
  Sex: Female
  Weight: 68 kg

DRUGS (6)
  1. LYRICA [Suspect]
     Indication: BURNING SENSATION
     Route: 048
     Dates: start: 20061001, end: 20061101
  2. LYRICA [Suspect]
     Indication: NEUROPATHY PERIPHERAL
  3. TOPROL-XL [Concomitant]
  4. ATACAND [Concomitant]
  5. PLAVIX [Concomitant]
  6. NORVASC [Concomitant]

REACTIONS (7)
  - ANOREXIA [None]
  - ATAXIA [None]
  - DIPLOPIA [None]
  - FATIGUE [None]
  - NAUSEA [None]
  - VISION BLURRED [None]
  - WEIGHT DECREASED [None]
